FAERS Safety Report 7776344-2 (Version None)
Quarter: 2011Q3

REPORT INFORMATION
  Report Type: 
  Country: None (occurrence: None)
  Receive Date: 20110926
  Receipt Date: 20110920
  Transmission Date: 20111222
  Serious: Yes (Other)
  Sender: FDA-Public Use
  Company Number: GB-JNJFOC-20110908040

PATIENT
  Sex: Female

DRUGS (1)
  1. ABIRATERONE ACETATE [Suspect]
     Indication: BREAST CANCER
     Route: 048

REACTIONS (1)
  - ERYTHEMA MULTIFORME [None]
